FAERS Safety Report 4628086-X (Version None)
Quarter: 2005Q2

REPORT INFORMATION
  Report Type: 
  Country: None (occurrence: None)
  Receive Date: 20050401
  Receipt Date: 20050324
  Transmission Date: 20051028
  Serious: Yes (Hospitalization)
  Sender: FDA-Public Use
  Company Number: 05-03-0489

PATIENT
  Age: 43 Year
  Sex: Female
  Weight: 69 kg

DRUGS (1)
  1. METFORMIN HCL [Suspect]
     Indication: DIABETES MELLITUS NON-INSULIN-DEPENDENT
     Dosage: 500MG BID

REACTIONS (2)
  - DRUG EXPOSURE DURING PREGNANCY [None]
  - MACROSOMIA [None]
